FAERS Safety Report 19395142 (Version 1)
Quarter: 2021Q2

REPORT INFORMATION
  Report Type: Spontaneous
  Country: US (occurrence: US)
  Receive Date: 20210609
  Receipt Date: 20210609
  Transmission Date: 20210717
  Serious: No
  Sender: FDA-Public Use
  Company Number: US-PFIZER INC-2021640971

PATIENT
  Age: 73 Year
  Sex: Female

DRUGS (1)
  1. LYRICA [Suspect]
     Active Substance: PREGABALIN
     Indication: NEUROPATHY PERIPHERAL
     Dosage: 200 MG, THREE TIMES A DAY, [1 CAPSULE (200 MG TOTAL) BY MOUTH 3 TIMES DAILY]
     Route: 048

REACTIONS (4)
  - Somnolence [Unknown]
  - Onychomycosis [Unknown]
  - Malaise [Unknown]
  - Feeling abnormal [Unknown]
